FAERS Safety Report 21452915 (Version 2)
Quarter: 2022Q4

REPORT INFORMATION
  Report Type: Spontaneous
  Country: JP (occurrence: JP)
  Receive Date: 20221013
  Receipt Date: 20221115
  Transmission Date: 20230113
  Serious: Yes (Hospitalization)
  Sender: FDA-Public Use
  Company Number: JP-CHUGAI-2022039501

PATIENT
  Age: 64 Year
  Sex: Male
  Weight: 68.3 kg

DRUGS (9)
  1. TECENTRIQ [Suspect]
     Active Substance: ATEZOLIZUMAB
     Indication: Lung adenocarcinoma
     Dosage: 1200 MILLIGRAM, SINGLE, MOST RECENT DOSE 21/JUL/2022
     Route: 041
     Dates: start: 20220721
  2. AVASTIN [Suspect]
     Active Substance: BEVACIZUMAB
     Indication: Lung adenocarcinoma
     Dosage: 1000 MILLIGRAM, SINGLE, MOST RECENT DOSE 21/JUL/2022
     Route: 041
     Dates: start: 20220721
  3. PACLITAXEL [Suspect]
     Active Substance: PACLITAXEL
     Indication: Lung adenocarcinoma
     Dosage: 260 MILLIGRAM, SINGLE, MOST RECENT DOSE 21/JUL/2022
     Route: 041
     Dates: start: 20220721
  4. CARBOPLATIN [Suspect]
     Active Substance: CARBOPLATIN
     Indication: Lung adenocarcinoma
     Dosage: 380 MILLIGRAM, SINGLE, MOST RECENT DOSE 21/JUL/2022
     Route: 041
     Dates: start: 20220721
  5. CALCIUM CARBONATE\CHOLECALCIFEROL\MAGNESIUM CARBONATE [Concomitant]
     Active Substance: CALCIUM CARBONATE\CHOLECALCIFEROL\MAGNESIUM CARBONATE
     Dosage: 2 DOSAGE FORM, QD
     Route: 048
     Dates: start: 20201023
  6. XARELTO [Concomitant]
     Active Substance: RIVAROXABAN
     Dosage: 15 MILLIGRAM, QD
     Route: 048
     Dates: start: 20200720
  7. CALONAL [Concomitant]
     Active Substance: ACETAMINOPHEN
     Dosage: 500 MILLIGRAM, TID
     Route: 048
     Dates: start: 20200720
  8. KETOPROFEN [Concomitant]
     Active Substance: KETOPROFEN
     Dosage: 20 MILLIGRAM, QD
     Route: 062
     Dates: start: 20210616
  9. DENOSUMAB [Concomitant]
     Active Substance: DENOSUMAB
     Dosage: UNK UNK, ONCE/MONTH
     Route: 058
     Dates: start: 20201023

REACTIONS (2)
  - Cholangitis [Unknown]
  - Hepatic function abnormal [Recovering/Resolving]

NARRATIVE: CASE EVENT DATE: 20220728
